FAERS Safety Report 5440927-5 (Version None)
Quarter: 2007Q3

REPORT INFORMATION
  Report Type: 
  Country: None (occurrence: None)
  Receive Date: 20070831
  Receipt Date: 20070820
  Transmission Date: 20080115
  Serious: Yes (Other)
  Sender: FDA-Public Use
  Company Number: DE-PFIZER INC-2006067205

PATIENT
  Sex: Female

DRUGS (10)
  1. LYRICA [Suspect]
     Indication: SPINAL DISORDER
     Dosage: DAILY DOSE:75MG
     Route: 048
     Dates: start: 20050501, end: 20060401
  2. NEURONTIN [Concomitant]
  3. TREVILOR [Concomitant]
  4. ACIMETHIN [Concomitant]
  5. COTRIM [Concomitant]
  6. METOPROLOL SUCCINATE [Concomitant]
  7. LEVOTHYROXINE SODIUM [Concomitant]
  8. PANTOPRAZOLE SODIUM [Concomitant]
  9. SIRDALUD [Concomitant]
  10. NOVALGIN [Concomitant]

REACTIONS (12)
  - ASTIGMATISM [None]
  - CERVICAL ROOT PAIN [None]
  - DEPRESSION [None]
  - DIPLOPIA [None]
  - GLAUCOMA [None]
  - HETEROPHORIA [None]
  - HYPERMETROPIA [None]
  - IVTH NERVE PARALYSIS [None]
  - MULTIPLE SCLEROSIS [None]
  - SCIATICA [None]
  - TUNNEL VISION [None]
  - VISUAL FIELD DEFECT [None]
